FAERS Safety Report 16694518 (Version 2)
Quarter: 2019Q3

REPORT INFORMATION
  Report Type: Spontaneous
  Country: US (occurrence: US)
  Receive Date: 20190812
  Receipt Date: 20190826
  Transmission Date: 20191004
  Serious: Yes (Other)
  Sender: FDA-Public Use
  Company Number: US-ELI_LILLY_AND_COMPANY-US201908000579

PATIENT
  Sex: Male

DRUGS (7)
  1. TALTZ [Suspect]
     Active Substance: IXEKIZUMAB
     Dosage: 80 MG, ONE INJECTION AT WEEK 2,4, 6, 8, 10 AND 12
     Route: 065
  2. LANTUS [Concomitant]
     Active Substance: INSULIN GLARGINE
     Indication: PRODUCT USED FOR UNKNOWN INDICATION
     Dosage: 100 MG, UNKNOWN
     Route: 065
     Dates: start: 20000101
  3. NOVOLOG [Concomitant]
     Active Substance: INSULIN ASPART
     Indication: PRODUCT USED FOR UNKNOWN INDICATION
     Dosage: 100 MG, UNKNOWN
     Route: 065
     Dates: start: 20000101
  4. TALTZ [Suspect]
     Active Substance: IXEKIZUMAB
     Dosage: 80MG, ONCE MONTHLY
     Route: 065
  5. INVOKANA [Concomitant]
     Active Substance: CANAGLIFLOZIN
     Indication: DIABETES MELLITUS
     Dosage: 100 MG, UNKNOWN
     Route: 065
     Dates: start: 20000101
  6. TALTZ [Suspect]
     Active Substance: IXEKIZUMAB
     Indication: PSORIASIS
     Dosage: 80 MG,TWO INJECTIONS AT WEEK 0
     Route: 065
     Dates: start: 20181128, end: 20190606
  7. ATORVASTATIN [Concomitant]
     Active Substance: ATORVASTATIN
     Indication: BLOOD CHOLESTEROL
     Dosage: 40 MG, UNKNOWN
     Route: 065
     Dates: start: 20000101

REACTIONS (2)
  - Osteomyelitis [Recovered/Resolved]
  - Blister [Recovered/Resolved]
